FAERS Safety Report 5160689-9 (Version None)
Quarter: 2006Q4

REPORT INFORMATION
  Report Type: 
  Country: None (occurrence: None)
  Receive Date: 20060918
  Receipt Date: 20050818
  Transmission Date: 20070319
  Serious: Yes (Other)
  Sender: FDA-Public Use
  Company Number: PHEH2005US05158

PATIENT
  Sex: Female

DRUGS (2)
  1. FEMARA [Suspect]
  2. COUMADIN [Concomitant]

REACTIONS (1)
  - THROMBOSIS [None]
